FAERS Safety Report 18431624 (Version 1)
Quarter: 2020Q4

REPORT INFORMATION
  Report Type: Other
  Country: KR (occurrence: KR)
  Receive Date: 20201027
  Receipt Date: 20201027
  Transmission Date: 20210114
  Serious: Yes (Other)
  Sender: FDA-Public Use
  Company Number: KR-ROCHE-2700712

PATIENT

DRUGS (6)
  1. SULFUR HEXAFLUORIDE [Suspect]
     Active Substance: SULFUR HEXAFLUORIDE
     Indication: RETINAL HAEMORRHAGE
     Route: 065
  2. BEVACIZUMAB. [Suspect]
     Active Substance: BEVACIZUMAB
     Indication: RETINAL HAEMORRHAGE
     Route: 050
  3. RANIBIZUMAB. [Concomitant]
     Active Substance: RANIBIZUMAB
     Indication: RETINAL HAEMORRHAGE
     Route: 050
  4. ALTEPLASE. [Suspect]
     Active Substance: ALTEPLASE
     Indication: RETINAL HAEMORRHAGE
     Route: 050
  5. PERFLUOROPROPANE [Concomitant]
     Active Substance: PERFLUTREN
     Indication: RETINOPEXY
  6. AFLIBERCEPT [Concomitant]
     Active Substance: AFLIBERCEPT
     Indication: RETINAL HAEMORRHAGE
     Route: 050

REACTIONS (6)
  - Retinal pigment epithelial tear [Unknown]
  - Off label use [Unknown]
  - Vitreous haemorrhage [Unknown]
  - Macular hole [Unknown]
  - Intentional product use issue [Unknown]
  - Retinal haemorrhage [Unknown]
